FAERS Safety Report 9061681 (Version 1)
Quarter: 2013Q1

REPORT INFORMATION
  Report Type: Spontaneous
  Country: US (occurrence: None)
  Receive Date: 20130122
  Receipt Date: 20130122
  Transmission Date: 20140127
  Serious: Yes (Death, Other)
  Sender: FDA-Public Use
  Company Number: AUR-APL-2013-00391

PATIENT
  Age: 29 Year
  Sex: Female

DRUGS (2)
  1. PAROXETINE (PAROXETINE) [Suspect]
     Indication: PRODUCT USED FOR UNKNOWN INDICATION
     Dosage: ORAL
     Route: 048
  2. FLECAINIDE (FLECAINIDE) [Suspect]
     Indication: PRODUCT USED FOR UNKNOWN INDICATION
     Dosage: ORAL
     Route: 048

REACTIONS (9)
  - Completed suicide [None]
  - Ventricular tachycardia [None]
  - Cardiac arrest [None]
  - Haemorrhage intracranial [None]
  - Generalised oedema [None]
  - Toxicity to various agents [None]
  - Central nervous system necrosis [None]
  - Electrocardiogram abnormal [None]
  - Incorrect dose administered [None]
